FAERS Safety Report 6988688-2 (Version None)
Quarter: 2010Q3

REPORT INFORMATION
  Report Type: 
  Country: None (occurrence: None)
  Receive Date: 20100830
  Receipt Date: 20100514
  Transmission Date: 20110219
  Serious: No
  Sender: FDA-Public Use
  Company Number: 2010056810

PATIENT
  Sex: Female

DRUGS (1)
  1. TOVIAZ [Suspect]
     Indication: MICTURITION URGENCY
     Dosage: 4 MG, 1X/DAY, ORAL
     Route: 048
     Dates: start: 20100429, end: 20100504

REACTIONS (4)
  - ABDOMINAL DISCOMFORT [None]
  - ABDOMINAL DISTENSION [None]
  - ADVERSE DRUG REACTION [None]
  - DIARRHOEA [None]
